FAERS Safety Report 18133361 (Version 5)
Quarter: 2020Q4

REPORT INFORMATION
  Report Type: Report from Study
  Country: US (occurrence: US)
  Receive Date: 20200811
  Receipt Date: 20201207
  Transmission Date: 20210113
  Serious: Yes (Congenital Anomaly)
  Sender: FDA-Public Use
  Company Number: US-SHIRE-US202024436

PATIENT
  Age: 66 Year
  Sex: Male

DRUGS (20)
  1. TEDUGLUTIDE [Suspect]
     Active Substance: TEDUGLUTIDE
     Dosage: UNK, 1X/DAY:QD
     Route: 058
     Dates: start: 20200727
  2. TEDUGLUTIDE [Suspect]
     Active Substance: TEDUGLUTIDE
     Dosage: 1.65 MILLIGRAM, QD
     Route: 058
     Dates: start: 20200718
  3. TEDUGLUTIDE [Suspect]
     Active Substance: TEDUGLUTIDE
     Dosage: 0.80 MILLIGRAM, 1X/DAY:QD
     Route: 058
     Dates: start: 20200818
  4. TEDUGLUTIDE [Suspect]
     Active Substance: TEDUGLUTIDE
     Indication: SHORT-BOWEL SYNDROME
     Dosage: 0.165 MILLILITER
     Route: 058
     Dates: start: 20200717
  5. TEDUGLUTIDE [Suspect]
     Active Substance: TEDUGLUTIDE
     Dosage: UNK, 1X/DAY:QD
     Route: 058
     Dates: start: 20200727
  6. TEDUGLUTIDE [Suspect]
     Active Substance: TEDUGLUTIDE
     Dosage: 0.80 MILLIGRAM, 1X/DAY:QD
     Route: 058
     Dates: start: 20200818
  7. TEDUGLUTIDE [Suspect]
     Active Substance: TEDUGLUTIDE
     Dosage: UNK, 1X/DAY:QD
     Route: 058
     Dates: start: 20200727
  8. TEDUGLUTIDE [Suspect]
     Active Substance: TEDUGLUTIDE
     Dosage: UNK, OTHER
     Route: 058
     Dates: start: 20200727
  9. TEDUGLUTIDE [Suspect]
     Active Substance: TEDUGLUTIDE
     Dosage: UNK, OTHER
     Route: 058
     Dates: start: 20200727
  10. TEDUGLUTIDE [Suspect]
     Active Substance: TEDUGLUTIDE
     Dosage: 1.65 MILLIGRAM, QD
     Route: 058
     Dates: start: 20200718
  11. TEDUGLUTIDE [Suspect]
     Active Substance: TEDUGLUTIDE
     Dosage: 1.65 MILLIGRAM, QD
     Route: 058
     Dates: start: 20200718
  12. TEDUGLUTIDE [Suspect]
     Active Substance: TEDUGLUTIDE
     Indication: SHORT-BOWEL SYNDROME
     Dosage: 0.165 MILLILITER
     Route: 058
     Dates: start: 20200717
  13. TEDUGLUTIDE [Suspect]
     Active Substance: TEDUGLUTIDE
     Dosage: UNK, 1X/DAY:QD
     Route: 058
     Dates: start: 20200727
  14. TEDUGLUTIDE [Suspect]
     Active Substance: TEDUGLUTIDE
     Dosage: UNK, OTHER
     Route: 058
     Dates: start: 20200727
  15. TEDUGLUTIDE [Suspect]
     Active Substance: TEDUGLUTIDE
     Dosage: 1.65 MILLIGRAM, QD
     Route: 058
     Dates: start: 20200718
  16. TEDUGLUTIDE [Suspect]
     Active Substance: TEDUGLUTIDE
     Indication: SHORT-BOWEL SYNDROME
     Dosage: 0.165 MILLILITER
     Route: 058
     Dates: start: 20200717
  17. TEDUGLUTIDE [Suspect]
     Active Substance: TEDUGLUTIDE
     Indication: SHORT-BOWEL SYNDROME
     Dosage: 0.165 MILLILITER
     Route: 058
     Dates: start: 20200717
  18. TEDUGLUTIDE [Suspect]
     Active Substance: TEDUGLUTIDE
     Dosage: UNK, OTHER
     Route: 058
     Dates: start: 20200727
  19. TEDUGLUTIDE [Suspect]
     Active Substance: TEDUGLUTIDE
     Dosage: 0.80 MILLIGRAM, 1X/DAY:QD
     Route: 058
     Dates: start: 20200818
  20. TEDUGLUTIDE [Suspect]
     Active Substance: TEDUGLUTIDE
     Dosage: 0.80 MILLIGRAM, 1X/DAY:QD
     Route: 058
     Dates: start: 20200818

REACTIONS (5)
  - Blood pressure increased [Unknown]
  - Fluid retention [Recovered/Resolved]
  - Fluid overload [Unknown]
  - Incorrect dose administered [Unknown]
  - Weight increased [Not Recovered/Not Resolved]

NARRATIVE: CASE EVENT DATE: 20200718
